FAERS Safety Report 11451559 (Version 1)
Quarter: 2015Q3

REPORT INFORMATION
  Report Type: Spontaneous
  Country: US (occurrence: None)
  Receive Date: 20150902
  Receipt Date: 20150902
  Transmission Date: 20151125
  Serious: Yes (Other)
  Sender: FDA-Public Use
  Company Number: None

PATIENT
  Age: 41 Year
  Sex: Female
  Weight: 117.94 kg

DRUGS (12)
  1. OMEPRAZOLE. [Concomitant]
     Active Substance: OMEPRAZOLE
  2. RIBOFLAVIN [Concomitant]
     Active Substance: RIBOFLAVIN
  3. TECFIDERA [Suspect]
     Active Substance: DIMETHYL FUMARATE
     Indication: MULTIPLE SCLEROSIS
     Dosage: 1 PILL
     Route: 048
     Dates: start: 20140131, end: 20150821
  4. UBIQUINOL [Concomitant]
     Active Substance: UBIQUINOL
  5. CLONAZEPAM. [Concomitant]
     Active Substance: CLONAZEPAM
  6. CPAP [Concomitant]
     Active Substance: DEVICE
  7. PERONEAL NERVE STIMULATOR [Concomitant]
  8. CLARITIN [Concomitant]
     Active Substance: LORATADINE
  9. LEVOTHYROXINE. [Concomitant]
     Active Substance: LEVOTHYROXINE
  10. VITAMIN D [Concomitant]
     Active Substance: CHOLECALCIFEROL
  11. B2/B12/FOLIC ACID [Concomitant]
  12. MAGNEIUM [Concomitant]

REACTIONS (2)
  - Urticaria [None]
  - Flushing [None]

NARRATIVE: CASE EVENT DATE: 20150703
